FAERS Safety Report 5691637-0 (Version None)
Quarter: 2008Q2

REPORT INFORMATION
  Report Type: 
  Country: None (occurrence: None)
  Receive Date: 20080402
  Receipt Date: 20051205
  Transmission Date: 20081010
  Serious: Yes (Death)
  Sender: FDA-Public Use
  Company Number: US-ROCHE-427655

PATIENT
  Age: 57 Year
  Sex: Female
  Weight: 136.1 kg

DRUGS (5)
  1. PEGASYS [Suspect]
     Indication: HEPATITIS C
     Route: 065
     Dates: start: 20051106
  2. RIBAVIRIN [Suspect]
     Indication: HEPATITIS C
     Route: 048
     Dates: start: 20051106
  3. MORPHINE [Concomitant]
     Indication: BACK PAIN
     Dosage: STARTED ^YEARS AGO^.
  4. PERCOCET [Concomitant]
     Indication: BACK PAIN
     Dosage: STARTED ^YEARS AGO^.
     Route: 048
  5. FLEXERIL [Concomitant]
     Indication: BACK PAIN
     Dosage: STARTED ^YEARS AGO^.
     Route: 048

REACTIONS (2)
  - DEATH [None]
  - VERTIGO [None]
